FAERS Safety Report 7775483-X (Version None)
Quarter: 2011Q3

REPORT INFORMATION
  Report Type: 
  Country: None (occurrence: None)
  Receive Date: 20110923
  Receipt Date: 20110921
  Transmission Date: 20111222
  Serious: Yes (Death, Hospitalization, Other)
  Sender: FDA-Public Use
  Company Number: PHHY2011US54813

PATIENT
  Sex: Female
  Weight: 68.027 kg

DRUGS (5)
  1. HUMALOG [Concomitant]
     Indication: SWELLING
     Dosage: UNK UKN, UNK
     Route: 048
  2. LASIX [Concomitant]
     Indication: DIABETES MELLITUS
     Dosage: UNK UKN, UNK
     Route: 058
  3. EXJADE [Suspect]
     Indication: SERUM FERRITIN INCREASED
  4. LANTUS [Concomitant]
     Indication: DIABETES MELLITUS
     Dosage: UNK UKN, UNK
     Route: 058
  5. EXJADE [Suspect]
     Indication: MYELODYSPLASTIC SYNDROME
     Dosage: 1250 MG, QD
     Route: 048
     Dates: start: 20110427, end: 20110817

REACTIONS (6)
  - DEATH [None]
  - RENAL FAILURE [None]
  - BLOOD CREATININE INCREASED [None]
  - PHARYNGEAL OEDEMA [None]
  - RENAL IMPAIRMENT [None]
  - URINE OUTPUT DECREASED [None]
